FAERS Safety Report 7657581-4 (Version None)
Quarter: 2011Q3

REPORT INFORMATION
  Report Type: 
  Country: None (occurrence: None)
  Receive Date: 20110804
  Receipt Date: 20110722
  Transmission Date: 20111222
  Serious: Yes (Other)
  Sender: FDA-Public Use
  Company Number: US-AMGEN-USASP2011037498

PATIENT
  Age: 34 Year
  Sex: Male

DRUGS (1)
  1. ENBREL [Suspect]
     Indication: PSORIASIS
     Dosage: 50 MG, 2 TIMES/WK
     Dates: start: 20110124

REACTIONS (6)
  - FINGER AMPUTATION [None]
  - SURGERY [None]
  - RASH PRURITIC [None]
  - INJECTION SITE PAIN [None]
  - ACCIDENT AT WORK [None]
  - RASH PAPULAR [None]
